FAERS Safety Report 22325441 (Version 1)
Quarter: 2023Q2

REPORT INFORMATION
  Report Type: Report from Study
  Country: CA (occurrence: CA)
  Receive Date: 20230516
  Receipt Date: 20230516
  Transmission Date: 20230722
  Serious: Yes (Hospitalization, Other)
  Sender: FDA-Public Use
  Company Number: CA-ABBVIE-4765201

PATIENT
  Sex: Female

DRUGS (1)
  1. SKYRIZI [Suspect]
     Active Substance: RISANKIZUMAB-RZAA
     Indication: Crohn^s disease
     Dosage: FIRST ADMIN DATE: 13 APR 2023
     Route: 058

REACTIONS (3)
  - Clostridium test positive [Unknown]
  - Tonsillectomy [Unknown]
  - Cellulitis [Unknown]

NARRATIVE: CASE EVENT DATE: 20230101
